FAERS Safety Report 7900321-1 (Version None)
Quarter: 2011Q4

REPORT INFORMATION
  Report Type: 
  Country: None (occurrence: None)
  Receive Date: 20111108
  Receipt Date: 20111031
  Transmission Date: 20120403
  Serious: Yes (Death)
  Sender: FDA-Public Use
  Company Number: US-CELGENEUS-163-21880-11064031

PATIENT
  Sex: Male

DRUGS (7)
  1. REVLIMID [Suspect]
  2. REVLIMID [Suspect]
  3. RITUXIMAB [Concomitant]
     Route: 065
     Dates: start: 20110501
  4. GEMCITABINE [Concomitant]
     Route: 065
     Dates: start: 20110501
  5. IBUPROFREN [Concomitant]
     Indication: PAIN
     Route: 048
     Dates: start: 20100920
  6. OXALIPLATIN [Concomitant]
     Route: 065
     Dates: start: 20110501
  7. REVLIMID [Suspect]
     Dosage: 25 MILLIGRAM
     Route: 048
     Dates: start: 20110607, end: 20110701

REACTIONS (3)
  - DISEASE PROGRESSION [None]
  - B-CELL LYMPHOMA [None]
  - DRUG INEFFECTIVE [None]
